FAERS Safety Report 14157391 (Version 1)
Quarter: 2017Q4

REPORT INFORMATION
  Report Type: Spontaneous
  Country: CN (occurrence: CN)
  Receive Date: 20171103
  Receipt Date: 20171103
  Transmission Date: 20180321
  Serious: Yes (Other)
  Sender: FDA-Public Use
  Company Number: CN-GLAXOSMITHKLINE-CN2017GSK166064

PATIENT
  Age: 73 Year
  Sex: Male
  Weight: 83 kg

DRUGS (2)
  1. LAMICTAL [Suspect]
     Active Substance: LAMOTRIGINE
     Dosage: 25 MG, BID, 1.25 TABLET
  2. LAMICTAL [Suspect]
     Active Substance: LAMOTRIGINE
     Indication: EPILEPSY
     Dosage: 25 MG, BID
     Route: 048

REACTIONS (6)
  - Loss of consciousness [Unknown]
  - Daydreaming [Unknown]
  - Arteriosclerosis [Unknown]
  - Feeling abnormal [Unknown]
  - Drug ineffective [Unknown]
  - Wrong technique in product usage process [Unknown]
